FAERS Safety Report 12668418 (Version 6)
Quarter: 2016Q3

REPORT INFORMATION
  Report Type: Report from Study
  Country: ES (occurrence: ES)
  Receive Date: 20160819
  Receipt Date: 20160929
  Transmission Date: 20161109
  Serious: Yes (Hospitalization)
  Sender: FDA-Public Use
  Company Number: ES-ABBVIE-16P-144-1700232-00

PATIENT
  Age: 45 Year
  Sex: Female
  Weight: 70 kg

DRUGS (6)
  1. RISPERDAL [Interacting]
     Active Substance: RISPERIDONE
     Indication: NERVOUSNESS
  2. ALPRAZOLAM. [Concomitant]
     Active Substance: ALPRAZOLAM
     Indication: NERVOUSNESS
     Route: 048
     Dates: start: 2013
  3. PAROXETINE. [Concomitant]
     Active Substance: PAROXETINE
     Indication: PRODUCT USED FOR UNKNOWN INDICATION
     Route: 048
  4. RISPERDAL [Interacting]
     Active Substance: RISPERIDONE
     Indication: RESTLESSNESS
     Route: 048
     Dates: start: 20160805, end: 20160810
  5. VIEKIRAX [Suspect]
     Active Substance: OMBITASVIR\PARITAPREVIR\RITONAVIR
     Indication: HEPATITIS C
     Route: 048
     Dates: start: 20160721, end: 20160922
  6. EXVIERA [Interacting]
     Active Substance: DASABUVIR
     Indication: HEPATITIS C
     Route: 048
     Dates: start: 20160721, end: 20160922

REACTIONS (8)
  - Restlessness [Not Recovered/Not Resolved]
  - Asthenia [Not Recovered/Not Resolved]
  - Decreased appetite [Not Recovered/Not Resolved]
  - Drug interaction [Unknown]
  - Ataxia [Not Recovered/Not Resolved]
  - Nervousness [Not Recovered/Not Resolved]
  - Medication error [Recovered/Resolved]
  - Parkinsonism [Not Recovered/Not Resolved]

NARRATIVE: CASE EVENT DATE: 201608
